FAERS Safety Report 21998112 (Version 2)
Quarter: 2023Q1

REPORT INFORMATION
  Report Type: Report from Study
  Country: CA (occurrence: CA)
  Receive Date: 20230216
  Receipt Date: 20230315
  Transmission Date: 20230418
  Serious: Yes (Life-Threatening, Hospitalization, Other)
  Sender: FDA-Public Use
  Company Number: CA-BRISTOL-MYERS SQUIBB COMPANY-2023-002175

PATIENT
  Age: 79 Year
  Sex: Male
  Weight: 87.4 kg

DRUGS (2)
  1. REBLOZYL [Suspect]
     Active Substance: LUSPATERCEPT-AAMT
     Indication: Myelodysplastic syndrome
     Route: 058
     Dates: start: 20220202, end: 20230118
  2. RITUXIMAB [Suspect]
     Active Substance: RITUXIMAB
     Indication: Pulmonary fibrosis
     Dosage: Q6/12

REACTIONS (9)
  - Treatment noncompliance [Unknown]
  - Malaise [Recovering/Resolving]
  - Pneumonia staphylococcal [Recovered/Resolved]
  - Endocarditis staphylococcal [Recovered/Resolved]
  - Acute kidney injury [Recovered/Resolved]
  - Staphylococcal sepsis [Recovered/Resolved]
  - Lung infiltration [Recovered/Resolved]
  - Pleural effusion [Recovered/Resolved]
  - White blood cell count increased [Recovered/Resolved]

NARRATIVE: CASE EVENT DATE: 20230118
